FAERS Safety Report 5753905-3 (Version None)
Quarter: 2008Q2

REPORT INFORMATION
  Report Type: 
  Country: None (occurrence: None)
  Receive Date: 20080530
  Receipt Date: 20080521
  Transmission Date: 20081010
  Serious: Yes (Death)
  Sender: FDA-Public Use
  Company Number: B0522119A

PATIENT
  Age: 80 Year
  Sex: Male

DRUGS (10)
  1. ARIXTRA [Suspect]
     Indication: DEEP VEIN THROMBOSIS
     Dosage: 7.5MG PER DAY
     Route: 058
     Dates: start: 20080402, end: 20080412
  2. TAHOR [Concomitant]
     Dosage: 10MG PER DAY
     Route: 065
  3. EXFORGE [Concomitant]
     Dosage: 10MG PER DAY
     Route: 065
  4. ASPIRIN [Concomitant]
     Dosage: 75MG PER DAY
     Route: 065
  5. PANTOPRAZOLE SODIUM [Concomitant]
     Dosage: 20MG PER DAY
     Route: 065
  6. FLUDEX [Concomitant]
     Dosage: 1.5MG PER DAY
     Route: 065
  7. ART 50 [Concomitant]
     Route: 065
  8. FORADIL [Concomitant]
     Route: 065
  9. AIROMIR [Concomitant]
     Route: 065
  10. BUDESONIDE [Concomitant]
     Route: 065

REACTIONS (7)
  - ABDOMINAL PAIN [None]
  - ANURIA [None]
  - GENERAL PHYSICAL HEALTH DETERIORATION [None]
  - HAEMOGLOBIN DECREASED [None]
  - RENAL FAILURE [None]
  - RETROPERITONEAL HAEMATOMA [None]
  - SHOCK HAEMORRHAGIC [None]
